FAERS Safety Report 11135506 (Version 3)
Quarter: 2015Q3

REPORT INFORMATION
  Report Type: Spontaneous
  Country: JP (occurrence: None)
  Receive Date: 20150521
  Receipt Date: 20150708
  Transmission Date: 20151125
  Serious: Yes (Other)
  Sender: FDA-Public Use
  Company Number: 2015-11354

PATIENT
  Age: 83 Year
  Sex: Male
  Weight: 32 kg

DRUGS (2)
  1. EYLEA [Suspect]
     Active Substance: AFLIBERCEPT
     Indication: MACULAR OEDEMA
     Route: 031
     Dates: start: 20140507, end: 20140507
  2. EYLEA [Suspect]
     Active Substance: AFLIBERCEPT
     Indication: RETINAL VEIN OCCLUSION
     Route: 031
     Dates: start: 20140507, end: 20140507

REACTIONS (3)
  - Vitreous haemorrhage [None]
  - Blindness [None]
  - Retinal vascular occlusion [None]

NARRATIVE: CASE EVENT DATE: 20140515
